FAERS Safety Report 7420218 (Version 2)
Quarter: 2013Q1

REPORT INFORMATION
  Report Type: Spontaneous
  Country: KR (occurrence: KR)
  Receive Date: 20100615
  Receipt Date: 20130313
  Transmission Date: 20140127
  Serious: Yes (Other)
  Sender: FDA-Public Use
  Company Number: KR-PFIZER INC-2010068250

PATIENT
  Sex: Male

DRUGS (3)
  1. DETRUSITOL [Suspect]
     Indication: URINARY TRACT DISORDER
     Dosage: 2.5 MG, UNK
     Route: 048
     Dates: start: 200905
  2. DETRUSITOL [Suspect]
     Indication: PROSTATIC DISORDER
  3. CARDURA [Suspect]
     Indication: BENIGN PROSTATIC HYPERPLASIA
     Dosage: UNK
     Route: 048

REACTIONS (7)
  - Urinary tract disorder [Recovering/Resolving]
  - Nocturia [Recovering/Resolving]
  - Dry mouth [Not Recovered/Not Resolved]
  - Pollakiuria [Recovering/Resolving]
  - Abdominal discomfort [Recovering/Resolving]
  - Drug ineffective [Recovering/Resolving]
  - Urinary tract infection [Recovering/Resolving]
